FAERS Safety Report 8949434 (Version 2)
Quarter: 2012Q4

REPORT INFORMATION
  Report Type: 
  Country: US (occurrence: US)
  Receive Date: 20121206
  Receipt Date: 20121228
  Transmission Date: 20130627
  Serious: Yes (Other)
  Sender: FDA-Public Use
  Company Number: US-PFIZER INC-2012305540

PATIENT
  Age: 35 Year
  Sex: Male
  Weight: 79.37 kg

DRUGS (3)
  1. LIPITOR [Suspect]
     Indication: HIGH CHOLESTEROL
     Dosage: 10 mg, once a day
     Route: 048
  2. EFFEXOR XR [Suspect]
     Indication: ANXIETY
     Dosage: 225 mg, once a day(one capsule of 75 mg and one capsule of 150 mg)
     Route: 048
  3. EFFEXOR XR [Suspect]
     Indication: DEPRESSION

REACTIONS (1)
  - Craniocerebral injury [Unknown]
